FAERS Safety Report 9013089 (Version 2)
Quarter: 2013Q1

REPORT INFORMATION
  Report Type: Spontaneous
  Country: FR (occurrence: FR)
  Receive Date: 20130114
  Receipt Date: 20130306
  Transmission Date: 20140127
  Serious: Yes (Disabling, Other)
  Sender: FDA-Public Use
  Company Number: FR-ASTELLAS-2013EU000189

PATIENT
  Sex: Male

DRUGS (4)
  1. PROTOPIC [Suspect]
     Indication: DERMATITIS ATOPIC
     Dosage: 0.1 %, OTHER
     Route: 061
     Dates: start: 2004
  2. PROTOPIC [Suspect]
     Dosage: 0.1 %, UID/QD
     Route: 061
     Dates: end: 201212
  3. AERIUS                             /01009701/ [Concomitant]
     Dosage: UNK
     Route: 048
  4. DERMOVAL                           /00008501/ [Concomitant]
     Dosage: UNK
     Route: 061

REACTIONS (4)
  - Drug ineffective [Unknown]
  - Intentional drug misuse [Unknown]
  - Herpes ophthalmic [Recovered/Resolved]
  - Ophthalmic herpes simplex [Recovering/Resolving]
